FAERS Safety Report 7207161-X (Version None)
Quarter: 2011Q1

REPORT INFORMATION
  Report Type: 
  Country: None (occurrence: None)
  Receive Date: 20110103
  Receipt Date: 20101227
  Transmission Date: 20110831
  Serious: Yes (Hospitalization, Other)
  Sender: FDA-Public Use
  Company Number: FR-ROCHE-679674

PATIENT
  Sex: Female
  Weight: 61 kg

DRUGS (12)
  1. ROACTEMRA [Suspect]
     Indication: RHEUMATOID ARTHRITIS
     Dosage: 20MG/ML, SOLUTION FOR INFUSION, DOSE FORM: INFUSION
     Route: 042
     Dates: start: 20090901, end: 20100106
  2. IMOVANE [Concomitant]
     Dosage: DAILY
     Route: 048
  3. PREVISCAN [Concomitant]
     Indication: INTRACARDIAC THROMBUS
     Dosage: DAILY
     Route: 048
  4. TAHOR [Concomitant]
     Indication: DYSLIPIDAEMIA
     Dosage: DOSE; 80 DAILY
     Route: 048
  5. OROCAL D3 [Concomitant]
     Indication: RHEUMATOID ARTHRITIS
     Dosage: DOSE; 1200/800 DAILY
     Route: 048
  6. DIFFU K [Concomitant]
     Dosage: DOSE; 1X2 DAILY
     Route: 048
  7. CORTANCYL [Concomitant]
     Indication: RHEUMATOID ARTHRITIS
     Route: 048
  8. METHOTREXATE [Concomitant]
     Indication: RHEUMATOID ARTHRITIS
     Dates: end: 20100106
  9. PLAQUENIL [Concomitant]
     Indication: RHEUMATOID ARTHRITIS
     Dosage: DOSE; 200X2
     Route: 048
  10. HEPARIN [Concomitant]
     Indication: MYOCARDIAL INFARCTION
  11. CARDENSIEL [Concomitant]
     Dosage: DOSE; 1.25 DAILY
     Route: 048
  12. ACTONEL [Concomitant]
     Indication: OSTEOPOROSIS
     Dosage: DOSE; 35 WEEKLY

REACTIONS (2)
  - POST HERPETIC NEURALGIA [None]
  - HERPES ZOSTER [None]
